FAERS Safety Report 8096041-6 (Version None)
Quarter: 2012Q1

REPORT INFORMATION
  Report Type: 
  Country: None (occurrence: None)
  Receive Date: 20120129
  Receipt Date: 20111228
  Transmission Date: 20120608
  Serious: No
  Sender: FDA-Public Use
  Company Number: US-ABBOTT-11P-163-0887120-00

PATIENT
  Sex: Female
  Weight: 53.118 kg

DRUGS (7)
  1. PREDNISONE TAB [Concomitant]
     Indication: CROHN'S DISEASE
  2. CIPROFLOXACIN [Concomitant]
     Indication: CROHN'S DISEASE
  3. HUMIRA [Suspect]
     Indication: CROHN'S DISEASE
     Dates: start: 20111017, end: 20111017
  4. HUMIRA [Suspect]
     Dates: start: 20111018, end: 20111018
  5. HUMIRA [Suspect]
     Dates: start: 20111101
  6. ASACOL [Concomitant]
     Indication: CROHN'S DISEASE
  7. IBUPROFEN [Concomitant]
     Indication: DYSMENORRHOEA

REACTIONS (4)
  - SLEEP DISORDER [None]
  - AFFECTIVE DISORDER [None]
  - SENSITIVITY OF TEETH [None]
  - HEADACHE [None]
